FAERS Safety Report 21811809 (Version 4)
Quarter: 2024Q4

REPORT INFORMATION
  Report Type: Spontaneous
  Country: US (occurrence: US)
  Receive Date: 20230103
  Receipt Date: 20241128
  Transmission Date: 20250114
  Serious: Yes (Other)
  Sender: PFIZER
  Company Number: US-PFIZER INC-PV202200133208

PATIENT
  Age: 72 Year
  Sex: Female

DRUGS (4)
  1. IBRANCE [Suspect]
     Active Substance: PALBOCICLIB
     Indication: Hormone receptor positive HER2 negative breast cancer
     Dosage: 125 MG, DAILY
     Dates: start: 20200204, end: 20200221
  2. IBRANCE [Suspect]
     Active Substance: PALBOCICLIB
     Indication: Breast cancer female
     Dosage: 125 MG DAILY
     Dates: start: 20200318
  3. IBRANCE [Suspect]
     Active Substance: PALBOCICLIB
     Dosage: 100 MG
     Dates: start: 20200429
  4. OMEPRAZOLE [Concomitant]
     Active Substance: OMEPRAZOLE
     Dosage: UNK, AS NEEDED
     Dates: start: 20220524

REACTIONS (16)
  - Hypokalaemia [Recovering/Resolving]
  - Diverticulitis [Unknown]
  - Leukopenia [Unknown]
  - Fatigue [Unknown]
  - Gastrooesophageal reflux disease [Recovering/Resolving]
  - Fatigue [Unknown]
  - Sleep disorder [Recovering/Resolving]
  - Pain [Recovered/Resolved]
  - Abdominal pain [Unknown]
  - Constipation [Unknown]
  - Insomnia [Unknown]
  - Anaemia [Unknown]
  - Nasopharyngitis [Recovering/Resolving]
  - Back pain [Unknown]
  - Musculoskeletal chest pain [Unknown]
  - Hypertension [Unknown]

NARRATIVE: CASE EVENT DATE: 20200101
